FAERS Safety Report 8827789 (Version 1)
Quarter: 2012Q4

REPORT INFORMATION
  Report Type: 
  Country: US (occurrence: US)
  Receive Date: 20121008
  Receipt Date: 20121008
  Transmission Date: 20130627
  Serious: No
  Sender: FDA-Public Use
  Company Number: US-PFIZER INC-2012245883

PATIENT
  Age: 63 Year
  Sex: Female

DRUGS (2)
  1. VFEND [Suspect]
     Indication: PULMONARY HYPERTENSION
  2. VFEND [Suspect]
     Indication: CHRONIC OBSTRUCTIVE PULMONARY DISEASE

REACTIONS (2)
  - Photosensitivity reaction [Unknown]
  - Abdominal discomfort [Unknown]
